FAERS Safety Report 21372732 (Version 1)
Quarter: 2022Q3

REPORT INFORMATION
  Report Type: Report from Study
  Country: CO (occurrence: CO)
  Receive Date: 20220924
  Receipt Date: 20220924
  Transmission Date: 20221027
  Serious: Yes (Other)
  Sender: FDA-Public Use
  Company Number: CO-NOVARTISPH-NVSC2022CO215475

PATIENT
  Sex: Male
  Weight: 74 kg

DRUGS (5)
  1. COSENTYX [Suspect]
     Active Substance: SECUKINUMAB
     Indication: Ankylosing spondylitis
     Dosage: 150 MG, QMO
     Route: 058
     Dates: start: 2021, end: 20220609
  2. ASPIRIN [Concomitant]
     Active Substance: ASPIRIN
     Indication: Cardiac disorder
     Dosage: 100 MG, QD
     Route: 048
     Dates: start: 202208
  3. FOLIC ACID [Concomitant]
     Active Substance: FOLIC ACID
     Indication: Cardiac disorder
     Dosage: 1 MG, QD
     Route: 048
     Dates: start: 2021
  4. SPIRONOLACTONE [Concomitant]
     Active Substance: SPIRONOLACTONE
     Indication: Cardiac disorder
     Dosage: 12.5 MG, QD
     Route: 048
     Dates: start: 202208
  5. HYDROCHLOROTHIAZIDE [Concomitant]
     Active Substance: HYDROCHLOROTHIAZIDE
     Indication: Cardiac disorder
     Dosage: 25 MG, QD
     Route: 048
     Dates: start: 202208

REACTIONS (3)
  - Arrhythmia [Unknown]
  - Chest pain [Unknown]
  - Cardiac dysfunction [Unknown]

NARRATIVE: CASE EVENT DATE: 20210101
